FAERS Safety Report 8208967-0 (Version None)
Quarter: 2012Q1

REPORT INFORMATION
  Report Type: 
  Country: None (occurrence: None)
  Receive Date: 20120314
  Receipt Date: 20120307
  Transmission Date: 20120608
  Serious: Yes (Hospitalization)
  Sender: FDA-Public Use
  Company Number: DE-PFIZER INC-2012060652

PATIENT
  Age: 20 Year
  Sex: Male

DRUGS (9)
  1. ZIPRASIDONE HCL [Suspect]
     Dosage: 40 MG / DAY
     Route: 048
     Dates: start: 20110922, end: 20110924
  2. ZIPRASIDONE HCL [Suspect]
     Dosage: 120 MG / DAY
     Route: 048
     Dates: start: 20110929, end: 20111013
  3. NEUROCIL [Suspect]
     Dosage: 125 MG / DAY
     Route: 048
     Dates: start: 20110823, end: 20110927
  4. NEUROCIL [Suspect]
     Dosage: 150 MG / DAY
     Route: 048
     Dates: start: 20110928, end: 20111016
  5. PANTOPRAZOLE [Concomitant]
     Dosage: 40 MG / DAY
     Route: 048
  6. ZIPRASIDONE HCL [Suspect]
     Dosage: 80 MG / DAY
     Route: 048
     Dates: start: 20110925, end: 20110928
  7. ABILIFY [Concomitant]
     Dosage: 30 MG / DAY
     Route: 048
     Dates: start: 20110301, end: 20111001
  8. ZIPRASIDONE HCL [Suspect]
     Dosage: 80 MG / DAY
     Route: 048
     Dates: start: 20111014
  9. NEUROCIL [Suspect]
     Dosage: 100 MG / DAY
     Route: 048
     Dates: start: 20111017

REACTIONS (6)
  - FEELING ABNORMAL [None]
  - LACERATION [None]
  - DISTURBANCE IN ATTENTION [None]
  - SEDATION [None]
  - ATAXIA [None]
  - PSYCHOMOTOR SKILLS IMPAIRED [None]
